FAERS Safety Report 8565186-6 (Version None)
Quarter: 2012Q3

REPORT INFORMATION
  Report Type: 
  Country: None (occurrence: None)
  Receive Date: 20120803
  Receipt Date: 20120112
  Transmission Date: 20120928
  Serious: Yes (Hospitalization)
  Sender: FDA-Public Use
  Company Number: US-ROCHE-1094692

PATIENT
  Sex: Female

DRUGS (7)
  1. PREDNISONE [Concomitant]
  2. PULMICORT [Concomitant]
  3. FLUTICASONE PROPIONATE [Concomitant]
     Dosage: 150/50
  4. SINGULAIR [Concomitant]
  5. ALLERGEN [Concomitant]
  6. XOLAIR [Suspect]
     Indication: ASTHMA
  7. XOLAIR [Suspect]
     Indication: RHINITIS ALLERGIC

REACTIONS (1)
  - ASTHMA [None]
